FAERS Safety Report 9001472 (Version 2)
Quarter: 2013Q4

REPORT INFORMATION
  Report Type: Spontaneous
  Country: GB (occurrence: GB)
  Receive Date: 20130107
  Receipt Date: 20131004
  Transmission Date: 20140711
  Serious: Yes (Other)
  Sender: FDA-Public Use
  Company Number: PHHY2013GB001042

PATIENT
  Age: 39 Year
  Sex: Female

DRUGS (5)
  1. TRAMADOL [Suspect]
     Indication: EAR PAIN
     Dosage: 100 MG, QID
     Dates: start: 20121212, end: 20121218
  2. CYCLIZINE [Concomitant]
     Dates: start: 20121005, end: 20121015
  3. ZOPICLONE [Concomitant]
     Dates: start: 20121005, end: 20121026
  4. PARACETAMOL [Concomitant]
     Dates: start: 20121212
  5. DIAZEPAM [Concomitant]
     Dates: start: 20121220

REACTIONS (6)
  - Akathisia [Recovered/Resolved]
  - Restlessness [Recovered/Resolved]
  - Agitation [Recovered/Resolved]
  - Insomnia [Recovered/Resolved]
  - Pressure of speech [Recovered/Resolved]
  - Tremor [Recovered/Resolved]
